FAERS Safety Report 22065498 (Version 2)
Quarter: 2023Q1

REPORT INFORMATION
  Report Type: Spontaneous
  Country: US (occurrence: US)
  Receive Date: 20230306
  Receipt Date: 20230317
  Transmission Date: 20230417
  Serious: No
  Sender: FDA-Public Use
  Company Number: US-SA-SAC20230303000529

PATIENT
  Age: 33 Year
  Sex: Female

DRUGS (14)
  1. DUPIXENT [Suspect]
     Active Substance: DUPILUMAB
     Indication: Dermatitis atopic
     Dosage: 1 DF, QOW
     Route: 058
     Dates: start: 20180102
  2. ESCITALOPRAM [Concomitant]
     Active Substance: ESCITALOPRAM OXALATE
  3. MONTELUKAST [Concomitant]
     Active Substance: MONTELUKAST SODIUM
  4. FML FORTE [Concomitant]
     Active Substance: FLUOROMETHOLONE
  5. ERYTHROMYCIN [Concomitant]
     Active Substance: ERYTHROMYCIN
  6. TACROLIMUS [Concomitant]
     Active Substance: TACROLIMUS
  7. POLYTRIM [Concomitant]
     Active Substance: POLYMYXIN B SULFATE\TRIMETHOPRIM SULFATE
  8. TOBRAMYCIN [Concomitant]
     Active Substance: TOBRAMYCIN
  9. TRAZODONE [Concomitant]
     Active Substance: TRAZODONE HYDROCHLORIDE
  10. ADDERALL [Concomitant]
     Active Substance: AMPHETAMINE ASPARTATE\AMPHETAMINE SULFATE\DEXTROAMPHETAMINE SACCHARATE\DEXTROAMPHETAMINE SULFATE
  11. CLARITIN [Concomitant]
     Active Substance: LORATADINE
  12. FIBER [Concomitant]
  13. FLUOXETINE [Concomitant]
     Active Substance: FLUOXETINE HYDROCHLORIDE
  14. LIQUIFILM [Concomitant]

REACTIONS (8)
  - Eye discharge [Unknown]
  - Eye pain [Unknown]
  - Migraine [Unknown]
  - Metamorphopsia [Unknown]
  - Impaired quality of life [Unknown]
  - Vision blurred [Unknown]
  - Ocular hyperaemia [Unknown]
  - Eye inflammation [Unknown]

NARRATIVE: CASE EVENT DATE: 20230206
